FAERS Safety Report 20167470 (Version 2)
Quarter: 2021Q4

REPORT INFORMATION
  Report Type: Spontaneous
  Country: BE (occurrence: BE)
  Receive Date: 20211209
  Receipt Date: 20211223
  Transmission Date: 20220304
  Serious: Yes (Death, Life-Threatening, Hospitalization, Other)
  Sender: FDA-Public Use
  Company Number: BE-TEVA-2021-BE-1984907

PATIENT
  Age: 33 Year
  Sex: Male

DRUGS (9)
  1. OXALIPLATIN [Suspect]
     Active Substance: OXALIPLATIN
     Indication: Adenocarcinoma of colon
     Route: 041
     Dates: start: 2013, end: 2013
  2. FLUOROURACIL\LEUCOVORIN [Suspect]
     Active Substance: FLUOROURACIL\LEUCOVORIN
     Indication: Adenocarcinoma of colon
     Route: 041
     Dates: start: 2013
  3. IRINOTECAN [Suspect]
     Active Substance: IRINOTECAN
     Indication: Adenocarcinoma of colon
     Route: 041
     Dates: start: 2014
  4. BEVACIZUMAB [Suspect]
     Active Substance: BEVACIZUMAB
     Indication: Adenocarcinoma of colon
     Route: 065
  5. PEMBROLIZUMAB [Suspect]
     Active Substance: PEMBROLIZUMAB
     Indication: Adenocarcinoma of colon
     Dosage: 35 CYCLES RECEIVED
     Route: 041
     Dates: end: 201711
  6. IPILIMUMAB [Suspect]
     Active Substance: IPILIMUMAB
     Indication: Adenocarcinoma of colon
     Dosage: FOR 10 MONTHS
     Route: 065
     Dates: start: 201809, end: 201907
  7. FLUOROURACIL [Suspect]
     Active Substance: FLUOROURACIL
     Indication: Adenocarcinoma of colon
     Dosage: PART OF DE GRAMONT REGIMEN
     Route: 041
     Dates: start: 2015, end: 2015
  8. LEUCOVORIN [Suspect]
     Active Substance: LEUCOVORIN
     Indication: Adenocarcinoma of colon
     Dosage: PART OF DE GRAMONT REGIMEN
     Route: 041
     Dates: start: 2015, end: 2015
  9. NIVOLUMAB [Suspect]
     Active Substance: NIVOLUMAB

REACTIONS (12)
  - Ileal perforation [Fatal]
  - Soft tissue infection [Fatal]
  - Staphylococcal sepsis [Unknown]
  - Device related sepsis [Unknown]
  - Fistula of small intestine [Unknown]
  - Back injury [Unknown]
  - Inflammation [Unknown]
  - Lactobacillus infection [Unknown]
  - Klebsiella infection [Unknown]
  - Escherichia infection [Unknown]
  - Streptococcal infection [Unknown]
  - Gastrointestinal toxicity [Unknown]

NARRATIVE: CASE EVENT DATE: 20190101
